FAERS Safety Report 4272661-1 (Version None)
Quarter: 2004Q1

REPORT INFORMATION
  Report Type: 
  Country: None (occurrence: None)
  Receive Date: 20040115
  Receipt Date: 20040115
  Transmission Date: 20041129
  Serious: Yes (Other)
  Sender: FDA-Public Use
  Company Number: None

PATIENT
  Sex: Male

DRUGS (1)
  1. HALOPERIDOL [Suspect]
     Indication: TOURETTE'S DISORDER
     Dosage: 2 MG BID PO
     Route: 048

REACTIONS (2)
  - DRUG EFFECT DECREASED [None]
  - PHARMACEUTICAL PRODUCT COMPLAINT [None]
